FAERS Safety Report 7350433-9 (Version None)
Quarter: 2011Q1

REPORT INFORMATION
  Report Type: 
  Country: None (occurrence: None)
  Receive Date: 20110314
  Receipt Date: 20110307
  Transmission Date: 20110831
  Serious: Yes (Life-Threatening, Other)
  Sender: FDA-Public Use
  Company Number: KR-ROXANE LABORATORIES, INC.-2011-RO-00279RO

PATIENT
  Age: 27 Year
  Sex: Male
  Weight: 67 kg

DRUGS (8)
  1. LIDOCAINE [Suspect]
     Dosage: 100 MG
     Route: 042
  2. ROCURONIUM BROMIDE [Suspect]
     Indication: INDUCTION OF ANAESTHESIA
     Dosage: 50 MG
     Route: 042
  3. EPINEPHRINE [Suspect]
     Dosage: 20 MCG
  4. LIDOCAINE [Suspect]
     Dosage: 4 ML
  5. MIDAZOLAM [Suspect]
     Dosage: 3 MG
     Route: 042
  6. FENTANYL [Suspect]
     Indication: INDUCTION OF ANAESTHESIA
     Dosage: 50 MCG
     Route: 042
  7. GLYCOPYRROLATE [Suspect]
     Dosage: 0.2 MG
     Route: 042
  8. PROPOFOL [Suspect]
     Indication: INDUCTION OF ANAESTHESIA
     Dosage: 120 MG
     Route: 042

REACTIONS (4)
  - TACHYCARDIA [None]
  - CARDIAC ARREST [None]
  - HYPERTENSION [None]
  - DRUG INEFFECTIVE [None]
